FAERS Safety Report 4578096-6 (Version None)
Quarter: 2005Q1

REPORT INFORMATION
  Report Type: 
  Country: None (occurrence: None)
  Receive Date: 20050202
  Receipt Date: 20050202
  Transmission Date: 20050727
  Serious: Yes (Other)
  Sender: FDA-Public Use
  Company Number: None

PATIENT
  Sex: Male

DRUGS (1)
  1. ZYBAN [Suspect]
     Indication: TOBACCO ABUSE
     Dosage: 150 MG PO 1 PO QD X3D THEN 2 / D
     Route: 048
     Dates: start: 20040701, end: 20040717

REACTIONS (1)
  - DIZZINESS [None]
